FAERS Safety Report 20194741 (Version 1)
Quarter: 2021Q4

REPORT INFORMATION
  Report Type: Spontaneous
  Country: US (occurrence: None)
  Receive Date: 20211216
  Receipt Date: 20211216
  Transmission Date: 20220303
  Serious: Yes (Hospitalization)
  Sender: FDA-Public Use
  Company Number: None

PATIENT
  Age: 62 Year
  Sex: Male
  Weight: 162.45 kg

DRUGS (22)
  1. CASIRIVIMAB\IMDEVIMAB [Suspect]
     Active Substance: CASIRIVIMAB\IMDEVIMAB
     Indication: COVID-19
     Dosage: OTHER FREQUENCY : ONCE;?
     Route: 042
     Dates: start: 20211209, end: 20211209
  2. GUAIFENESIN [Concomitant]
     Active Substance: GUAIFENESIN
     Dates: start: 20211214, end: 20211214
  3. WARFARIN [Concomitant]
     Active Substance: WARFARIN
     Dates: start: 20211209, end: 20211213
  4. Insulin Lispro Injection [Concomitant]
     Dates: start: 20211207, end: 20211214
  5. SIMETHICONE (DIMETHICONE) [Concomitant]
     Active Substance: DIMETHICONE
     Dates: start: 20211212, end: 20211215
  6. PHOSPHORUS [Concomitant]
     Active Substance: PHOSPHORUS
     Dates: start: 20211211, end: 20211211
  7. OXYCODONE [Concomitant]
     Active Substance: OXYCODONE
     Dates: start: 20211206, end: 20211215
  8. EMPAGLIFLOZIN [Concomitant]
     Active Substance: EMPAGLIFLOZIN
     Dates: start: 20211212, end: 20211215
  9. ACETAMINOPHEN [Concomitant]
     Active Substance: ACETAMINOPHEN
     Dates: start: 20211206, end: 20211215
  10. DOCUSATE SODIUM [Concomitant]
     Active Substance: DOCUSATE SODIUM
     Dates: start: 20211206, end: 20211215
  11. Aluminum-Magnesium Hydroxide-Simethicone [Concomitant]
     Dates: start: 20211206, end: 20211215
  12. GABAPENTIN [Concomitant]
     Active Substance: GABAPENTIN
     Dates: start: 20211206, end: 20211215
  13. HYDRALAZINE [Concomitant]
     Active Substance: HYDRALAZINE HYDROCHLORIDE
     Dates: start: 20211206
  14. METOPROLOL TARTRATE [Concomitant]
     Active Substance: METOPROLOL TARTRATE
     Dates: start: 20211206, end: 20211215
  15. NIFEDIPINE [Concomitant]
     Active Substance: NIFEDIPINE
     Dates: start: 20211207, end: 20211207
  16. EZETIMIBE [Concomitant]
     Active Substance: EZETIMIBE
     Dates: start: 20211207, end: 20211215
  17. SPIRONOLACTONE [Concomitant]
     Active Substance: SPIRONOLACTONE
     Dates: start: 20211206, end: 20211215
  18. PANTOPRAZOLE SODIUM [Concomitant]
     Active Substance: PANTOPRAZOLE SODIUM
     Dates: start: 20211206, end: 20211215
  19. SERTRALINE [Concomitant]
     Active Substance: SERTRALINE HYDROCHLORIDE
     Dates: start: 20211206, end: 20211215
  20. ISOSORBIDE MONONITRATE [Concomitant]
     Active Substance: ISOSORBIDE MONONITRATE
     Dates: start: 20211207, end: 20211215
  21. ONDANSETRON [Concomitant]
     Active Substance: ONDANSETRON
     Dates: start: 20211206, end: 20211215
  22. INSULIN GLARGINE [Concomitant]
     Active Substance: INSULIN GLARGINE
     Dates: start: 20211207, end: 20211215

REACTIONS (3)
  - Body temperature increased [None]
  - Dyspnoea [None]
  - Productive cough [None]

NARRATIVE: CASE EVENT DATE: 20211201
